FAERS Safety Report 18978687 (Version 3)
Quarter: 2021Q1

REPORT INFORMATION
  Report Type: Report from Study
  Country: None (occurrence: US)
  Receive Date: 20210308
  Receipt Date: 20210325
  Transmission Date: 20210420
  Serious: Yes (Other)
  Sender: FDA-Public Use
  Company Number: US-ABBVIE-21K-163-3745529-00

PATIENT
  Age: 62 Year
  Sex: Male
  Weight: 104.42 kg

DRUGS (11)
  1. METFORMIN [Concomitant]
     Active Substance: METFORMIN HYDROCHLORIDE
     Indication: BLOOD GLUCOSE
     Route: 065
  2. HUMIRA [Suspect]
     Active Substance: ADALIMUMAB
     Indication: CROHN^S DISEASE
     Dosage: CITRATE FREE
     Route: 058
     Dates: start: 201808
  3. GLIMEPIRIDE. [Concomitant]
     Active Substance: GLIMEPIRIDE
     Indication: BLOOD GLUCOSE
     Route: 065
  4. FORXIGA [Concomitant]
     Active Substance: DAPAGLIFLOZIN
     Indication: BLOOD GLUCOSE
     Route: 065
  5. TAMSULOSIN [Concomitant]
     Active Substance: TAMSULOSIN
     Indication: MICTURITION DISORDER
     Route: 065
  6. LOSARTAN POTASSIUM. [Concomitant]
     Active Substance: LOSARTAN POTASSIUM
     Indication: BLOOD PRESSURE MEASUREMENT
     Route: 065
  7. TRULICITY [Concomitant]
     Active Substance: DULAGLUTIDE
     Indication: BLOOD GLUCOSE
     Route: 058
  8. ASPIRIN (E.C.) [Concomitant]
     Active Substance: ASPIRIN
     Indication: PRODUCT USED FOR UNKNOWN INDICATION
     Route: 065
  9. NEXIUM [Concomitant]
     Active Substance: ESOMEPRAZOLE MAGNESIUM
     Indication: GASTROOESOPHAGEAL REFLUX DISEASE
     Route: 065
  10. PROBIOTIC [Concomitant]
     Active Substance: PROBIOTICS NOS
     Indication: CROHN^S DISEASE
     Route: 065
  11. GABAPENTIN. [Concomitant]
     Active Substance: GABAPENTIN
     Indication: NEUROPATHY PERIPHERAL
     Route: 065

REACTIONS (4)
  - Headache [Recovered/Resolved]
  - Pain [Recovered/Resolved]
  - Procedural pain [Recovered/Resolved]
  - Nasal septum deviation [Recovered/Resolved]

NARRATIVE: CASE EVENT DATE: 202012
